FAERS Safety Report 8109552-1 (Version None)
Quarter: 2012Q1

REPORT INFORMATION
  Report Type: 
  Country: None (occurrence: None)
  Receive Date: 20120202
  Receipt Date: 20120125
  Transmission Date: 20120608
  Serious: Yes (Death, Other)
  Sender: FDA-Public Use
  Company Number: IT-PFIZER INC-2012016342

PATIENT
  Age: 67 Year
  Sex: Female

DRUGS (5)
  1. PLASMINOGEN ACTIVATOR INHIBITOR 1 [Concomitant]
     Dosage: 1 MG/KG
     Route: 041
  2. PLASMINOGEN ACTIVATOR INHIBITOR 1 [Concomitant]
     Indication: AORTIC THROMBOSIS
     Dosage: 10 MG
     Route: 040
  3. HEPARIN [Concomitant]
     Dosage: 18 U/KG/H
     Route: 041
  4. ARGATROBAN [Suspect]
     Indication: ANTICOAGULANT THERAPY
     Dosage: 2 MCG/KG/MIN
     Route: 042
  5. HEPARIN [Concomitant]
     Indication: AORTIC THROMBOSIS
     Dosage: 80 U/KG
     Route: 040

REACTIONS (3)
  - AORTIC THROMBOSIS [None]
  - CEREBRAL HAEMORRHAGE [None]
  - ACUTE MYOCARDIAL INFARCTION [None]
